FAERS Safety Report 9577391 (Version 1)
Quarter: 2013Q4

REPORT INFORMATION
  Report Type: Spontaneous
  Country: US (occurrence: US)
  Receive Date: 20131001
  Receipt Date: 20131001
  Transmission Date: 20140711
  Serious: No
  Sender: FDA-Public Use
  Company Number: US-AMGEN-USASP2013007370

PATIENT
  Sex: Female
  Weight: 86.17 kg

DRUGS (6)
  1. ENBREL [Suspect]
     Indication: PSORIASIS
     Dosage: 50 MG, 2 TIMES/WK
     Dates: start: 201201
  2. EFFEXOR XR [Concomitant]
     Dosage: 37.5 MG, UNK
  3. VERAPAMIL [Concomitant]
     Dosage: 120 MG, UNK
  4. VITAMIN C                          /00008001/ [Concomitant]
     Dosage: 500 MG, UNK
  5. LEVOXYL [Concomitant]
     Dosage: 112 MUG, UNK
  6. METHOTREXATE [Concomitant]
     Dosage: 20 MG, UNK

REACTIONS (2)
  - Injection site pain [Unknown]
  - Injection site haemorrhage [Unknown]
